FAERS Safety Report 8170063-9 (Version None)
Quarter: 2012Q1

REPORT INFORMATION
  Report Type: 
  Country: None (occurrence: None)
  Receive Date: 20120106
  Receipt Date: 20120106
  Transmission Date: 20120608
  Serious: No
  Sender: FDA-Public Use
  Company Number: 20110461

PATIENT
  Age: 42 Year
  Sex: Female

DRUGS (1)
  1. VENOFER [Suspect]
     Indication: ANAEMIA
     Dosage: 200 MG INTRAVENOUS
     Route: 042
     Dates: start: 20110601, end: 20110601

REACTIONS (4)
  - HYPERHIDROSIS [None]
  - COLD SWEAT [None]
  - NAUSEA [None]
  - HYPERSENSITIVITY [None]
